FAERS Safety Report 15525907 (Version 1)
Quarter: 2018Q4

REPORT INFORMATION
  Report Type: Spontaneous
  Country: US (occurrence: US)
  Receive Date: 20181018
  Receipt Date: 20181018
  Transmission Date: 20190205
  Serious: Yes (Other)
  Sender: FDA-Public Use
  Company Number: US-OTSUKA-2018_033353

PATIENT

DRUGS (5)
  1. CLADRIBINE. [Suspect]
     Active Substance: CLADRIBINE
     Indication: ACUTE MYELOID LEUKAEMIA
     Dosage: TWO 28 DAY CYCLES FOR UP TO 18 CYCLES
     Route: 042
  2. CLADRIBINE. [Suspect]
     Active Substance: CLADRIBINE
     Dosage: 5 MG/M2, OVER 1-2 HOUR ON DAY 1-5
     Route: 042
  3. CYTARABINE. [Suspect]
     Active Substance: CYTARABINE
     Dosage: 20 MG, BID ON DAYS 1-10
     Route: 058
  4. DECITABINE. [Suspect]
     Active Substance: DECITABINE
     Indication: ACUTE MYELOID LEUKAEMIA
     Dosage: TWO 28 DAY CYCLES UPTO 18 CYCLES
     Route: 042
  5. CYTARABINE. [Suspect]
     Active Substance: CYTARABINE
     Indication: ACUTE MYELOID LEUKAEMIA
     Dosage: LOW DOSE TWO 28?DAY CYCLES FOR UP TO 18 CYCLES
     Route: 065

REACTIONS (1)
  - Arrhythmia [Unknown]
